FAERS Safety Report 25574099 (Version 1)
Quarter: 2025Q3

REPORT INFORMATION
  Report Type: Spontaneous
  Country: US (occurrence: None)
  Receive Date: 20250717
  Receipt Date: 20250717
  Transmission Date: 20251021
  Serious: Yes (Hospitalization)
  Sender: FDA-CTU
  Company Number: None

PATIENT
  Sex: Female
  Weight: 85.5 kg

DRUGS (8)
  1. TADALAFIL [Suspect]
     Active Substance: TADALAFIL
     Indication: Pulmonary arterial hypertension
     Dosage: 40 MG DAILY ORAL
     Route: 048
  2. OPSUMIT [Suspect]
     Active Substance: MACITENTAN
     Indication: Pulmonary arterial hypertension
     Dosage: 10 MG DAILY ORAL
     Dates: start: 20161208
  3. EPOPROSTENOL [Suspect]
     Active Substance: EPOPROSTENOL
  4. STERILE DILUENT FOR REMODULIN [Concomitant]
     Active Substance: WATER
  5. TRAMADOL [Concomitant]
     Active Substance: TRAMADOL
  6. ZOFRAN [Concomitant]
     Active Substance: ONDANSETRON HYDROCHLORIDE
     Dosage: FREQUENCY : DAILY;?
     Route: 048
     Dates: start: 20161208
  7. REMODULIN [Suspect]
     Active Substance: TREPROSTINIL
  8. UPTRAVI [Suspect]
     Active Substance: SELEXIPAG
     Dosage: FREQUENCY : TWICE A DAY;?
     Route: 048

REACTIONS (4)
  - Nausea [None]
  - Diarrhoea [None]
  - Sepsis [None]
  - Malaise [None]
